FAERS Safety Report 21531274 (Version 1)
Quarter: 2022Q4

REPORT INFORMATION
  Report Type: Spontaneous
  Country: US (occurrence: None)
  Receive Date: 20221028
  Receipt Date: 20221028
  Transmission Date: 20230112
  Serious: Yes (Life-Threatening, Hospitalization)
  Sender: FDA-Public Use
  Company Number: None

PATIENT
  Age: 12 Year
  Sex: Female
  Weight: 46.5 kg

DRUGS (1)
  1. SODIUM IODIDE I 131 [Suspect]
     Active Substance: SODIUM IODIDE I-131
     Dates: start: 20220922, end: 20220922

REACTIONS (6)
  - Unresponsive to stimuli [None]
  - Pyrexia [None]
  - Pancytopenia [None]
  - Respiratory syncytial virus test positive [None]
  - Lung opacity [None]
  - Respiratory distress [None]

NARRATIVE: CASE EVENT DATE: 20221025
